FAERS Safety Report 6349771-8 (Version None)
Quarter: 2009Q3

REPORT INFORMATION
  Report Type: 
  Country: None (occurrence: None)
  Receive Date: 20090911
  Receipt Date: 20090828
  Transmission Date: 20100115
  Serious: Yes (Hospitalization)
  Sender: FDA-Public Use
  Company Number: US-ROCHE-634087

PATIENT
  Sex: Female
  Weight: 76.2 kg

DRUGS (2)
  1. RIBAVIRIN [Suspect]
     Indication: HEPATITIS C
     Route: 065
     Dates: start: 20090309
  2. PEG-INTERFERON A-2A (RO 25-8310) [Suspect]
     Indication: HEPATITIS C
     Dosage: DOSEFORM: PRE-FILLED SYRINGE
     Route: 058
     Dates: start: 20090309

REACTIONS (7)
  - ANAEMIA [None]
  - ANGINA PECTORIS [None]
  - BLINDNESS UNILATERAL [None]
  - DYSPNOEA [None]
  - FATIGUE [None]
  - HYPERSOMNIA [None]
  - RASH PRURITIC [None]
